FAERS Safety Report 10075459 (Version 1)
Quarter: 2014Q2

REPORT INFORMATION
  Report Type: Spontaneous
  Country: US (occurrence: None)
  Receive Date: 20140411
  Receipt Date: 20140411
  Transmission Date: 20141212
  Serious: Yes (Hospitalization)
  Sender: FDA-Public Use
  Company Number: None

PATIENT
  Age: 61 Year
  Sex: Male
  Weight: 143.79 kg

DRUGS (7)
  1. DECITABINE [Suspect]
     Indication: ACUTE MYELOID LEUKAEMIA
     Dosage: 20MG/M2;QDX10;28DAYCYCLES
     Dates: start: 20140226
  2. ACYCLOVIR [Concomitant]
  3. ALLOPURINOL [Concomitant]
  4. FLUCONAZOLE [Concomitant]
  5. COMPAZINE [Concomitant]
  6. VITAMIN [Concomitant]
  7. MULTIVIT [Concomitant]

REACTIONS (1)
  - Febrile neutropenia [None]
